FAERS Safety Report 23301864 (Version 1)
Quarter: 2023Q4

REPORT INFORMATION
  Report Type: Spontaneous
  Country: US (occurrence: None)
  Receive Date: 20231214
  Receipt Date: 20231214
  Transmission Date: 20240109
  Serious: Yes (Hospitalization)
  Sender: FDA-Public Use
  Company Number: None

PATIENT
  Sex: Male

DRUGS (3)
  1. SKYRIZI [Suspect]
     Active Substance: RISANKIZUMAB-RZAA
     Indication: Psoriasis
     Route: 058
     Dates: start: 20220510
  2. XOLAIR [Suspect]
     Active Substance: OMALIZUMAB
  3. ALLEGRA-D TAB 12 HOUR [Concomitant]

REACTIONS (1)
  - Nonspecific reaction [None]
